FAERS Safety Report 9262766 (Version 1)
Quarter: 2013Q2

REPORT INFORMATION
  Report Type: Spontaneous
  Country: US (occurrence: None)
  Receive Date: 20130426
  Receipt Date: 20130426
  Transmission Date: 20140414
  Serious: Yes (Hospitalization)
  Sender: FDA-Public Use
  Company Number: None

PATIENT
  Age: 52 Year
  Sex: Male
  Weight: 76.2 kg

DRUGS (6)
  1. METHOXYAMINE [Suspect]
     Indication: MALIGNANT MELANOMA
     Dosage: 120MG/M2
     Dates: start: 20130228, end: 20130328
  2. TEMOZOLOMIDE [Suspect]
     Dosage: 150MGM2X5D
     Dates: start: 20130228, end: 20130328
  3. LASIX [Concomitant]
  4. PERCOCET [Concomitant]
  5. HYDROCORTISONE [Concomitant]
  6. NEXIUM [Concomitant]

REACTIONS (1)
  - Pleural effusion [None]
